FAERS Safety Report 12673315 (Version 3)
Quarter: 2017Q3

REPORT INFORMATION
  Report Type: Spontaneous
  Country: US (occurrence: US)
  Receive Date: 20160822
  Receipt Date: 20170904
  Transmission Date: 20171127
  Serious: Yes (Other)
  Sender: FDA-Public Use
  Company Number: US-BRISTOL-MYERS SQUIBB COMPANY-BMS-2016-068217

PATIENT
  Age: 65 Year
  Sex: Female

DRUGS (1)
  1. ORENCIA [Suspect]
     Active Substance: ABATACEPT
     Indication: RHEUMATOID ARTHRITIS
     Dosage: 125 MG, QWK
     Route: 058
     Dates: start: 20140830

REACTIONS (6)
  - Cough [Unknown]
  - Arrhythmia [Unknown]
  - Pruritus [Unknown]
  - Wheezing [Unknown]
  - Memory impairment [Unknown]
  - Contusion [Unknown]

NARRATIVE: CASE EVENT DATE: 20150830
